FAERS Safety Report 20488456 (Version 2)
Quarter: 2022Q1

REPORT INFORMATION
  Report Type: Report from Study
  Country: CO (occurrence: CO)
  Receive Date: 20220218
  Receipt Date: 20220321
  Transmission Date: 20220423
  Serious: Yes (Other)
  Sender: FDA-Public Use
  Company Number: CO-ABBVIE-22K-036-4282190-00

PATIENT
  Sex: Female
  Weight: 53 kg

DRUGS (3)
  1. HUMIRA [Suspect]
     Active Substance: ADALIMUMAB
     Indication: Rheumatoid arthritis
     Route: 058
     Dates: end: 20220111
  2. COLCHICINE [Suspect]
     Active Substance: COLCHICINE
     Indication: Eye inflammation
     Route: 048
     Dates: start: 202110, end: 202201
  3. HUMIRA [Suspect]
     Active Substance: ADALIMUMAB
     Indication: Rheumatoid arthritis
     Route: 058
     Dates: start: 20090810

REACTIONS (6)
  - Uveitis [Recovering/Resolving]
  - Scleritis [Not Recovered/Not Resolved]
  - Decreased appetite [Recovering/Resolving]
  - Weight decreased [Recovering/Resolving]
  - Dry skin [Recovered/Resolved]
  - Nausea [Recovering/Resolving]

NARRATIVE: CASE EVENT DATE: 20210101
